FAERS Safety Report 8496069-8 (Version None)
Quarter: 2012Q3

REPORT INFORMATION
  Report Type: 
  Country: None (occurrence: None)
  Receive Date: 20120709
  Receipt Date: 20120629
  Transmission Date: 20120928
  Serious: Yes (Other)
  Sender: FDA-Public Use
  Company Number: US-ASTRAZENECA-2012SE44494

PATIENT
  Age: 51 Year
  Sex: Female
  Weight: 113.4 kg

DRUGS (10)
  1. FUROSEMIDE [Concomitant]
     Indication: HYPERTENSION
     Route: 048
     Dates: start: 20070101
  2. PREVACID [Concomitant]
     Indication: GASTROOESOPHAGEAL REFLUX DISEASE
     Route: 048
     Dates: start: 20070101
  3. TIZANIDINE HCL [Concomitant]
     Indication: MUSCLE RELAXANT THERAPY
     Route: 048
     Dates: start: 20070101
  4. ROZEREM [Concomitant]
     Indication: SLEEP DISORDER
     Route: 048
     Dates: start: 20070101
  5. LISINOPRIL [Concomitant]
     Indication: HYPERTENSION
     Route: 048
     Dates: start: 20000101
  6. BYSTOLIC [Concomitant]
     Indication: HYPERTENSION
     Route: 048
     Dates: start: 20110101
  7. OXYCODONE HCL AND ACETAMINOPHEN [Concomitant]
     Indication: PAIN
     Dosage: 7.5/325 MG AT NIGHT
     Route: 048
     Dates: start: 20120501
  8. TRAMADOL HCL [Concomitant]
     Indication: BREAKTHROUGH PAIN
     Route: 048
     Dates: start: 20070101
  9. NEXIUM [Suspect]
     Indication: GASTROOESOPHAGEAL REFLUX DISEASE
     Route: 048
     Dates: start: 20100101
  10. SEROQUEL [Suspect]
     Indication: BIPOLAR DISORDER
     Route: 048
     Dates: start: 20070101

REACTIONS (5)
  - INSOMNIA [None]
  - ARTHROPATHY [None]
  - BRAIN NEOPLASM [None]
  - BACK DISORDER [None]
  - PAIN [None]
